FAERS Safety Report 6468457-2 (Version None)
Quarter: 2009Q4

REPORT INFORMATION
  Report Type: 
  Country: None (occurrence: None)
  Receive Date: 20091202
  Receipt Date: 20091202
  Transmission Date: 20100525
  Serious: Yes (Hospitalization)
  Sender: FDA-Public Use
  Company Number: None

PATIENT
  Sex: Female
  Weight: 63.5036 kg

DRUGS (2)
  1. OXYCODONE HCL [Suspect]
     Indication: PAIN
     Dosage: HCL 30MG TAB 2 TABS EVERY 8 HRS
  2. PROVIGIL [Suspect]
     Indication: UNEVALUABLE EVENT
     Dosage: 200MG TAB 1-2 MORNINGS

REACTIONS (4)
  - CONFUSIONAL STATE [None]
  - IMPAIRED DRIVING ABILITY [None]
  - ROAD TRAFFIC ACCIDENT [None]
  - UNEVALUABLE EVENT [None]
